FAERS Safety Report 21004549 (Version 1)
Quarter: 2022Q2

REPORT INFORMATION
  Report Type: Other
  Country: None (occurrence: US)
  Receive Date: 20220624
  Receipt Date: 20220624
  Transmission Date: 20220721
  Serious: Yes (Other)
  Sender: FDA-Public Use
  Company Number: US-Mary Kay Inc.-2130249

PATIENT
  Age: 50 Year
  Sex: Female

DRUGS (3)
  1. MARY KAY FOUNDATION PRIMER [Suspect]
     Active Substance: AVOBENZONE\HOMOSALATE\OCTISALATE\OCTOCRYLENE
     Indication: Photosensitivity reaction
     Route: 061
     Dates: start: 20220612, end: 20220612
  2. MARY KAY CC CREAM SUNSCREEN BROAD SPECTRUM SPF 15 DEEP [Suspect]
     Active Substance: HOMOSALATE\OCTINOXATE\OXYBENZONE
     Route: 061
     Dates: start: 20220612, end: 20220612
  3. MARY KAY TIMEWISE AGE MINIMIZE 3D DAY CREAM SPF 30 BROAD SPECTRUM SUNS [Suspect]
     Active Substance: AVOBENZONE\HOMOSALATE\OCTISALATE\OCTOCRYLENE\OXYBENZONE
     Route: 061
     Dates: start: 20220612, end: 20220612

REACTIONS (1)
  - Swelling face [Recovering/Resolving]

NARRATIVE: CASE EVENT DATE: 20220612
